FAERS Safety Report 5506288-8 (Version None)
Quarter: 2007Q4

REPORT INFORMATION
  Report Type: 
  Country: None (occurrence: None)
  Receive Date: 20071101
  Receipt Date: 20071101
  Transmission Date: 20080405
  Serious: Yes (Hospitalization)
  Sender: FDA-Public Use
  Company Number: None

PATIENT
  Sex: Male
  Weight: 68.4 kg

DRUGS (8)
  1. IRINOTECAN HCL [Suspect]
     Indication: METASTATIC CARCINOMA OF THE BLADDER
     Dosage: 505 D1 OF EACH CYCLE 033
     Dates: start: 20070614, end: 20070705
  2. DILAUDID [Concomitant]
  3. DURAGESIC-100 [Concomitant]
  4. COMPAZINE [Concomitant]
  5. REGLAN [Concomitant]
  6. TINAZAPARIN [Concomitant]
  7. LOVENOX [Concomitant]
  8. VICODIN [Concomitant]

REACTIONS (6)
  - CATHETER SITE RELATED REACTION [None]
  - HAEMOPTYSIS [None]
  - ILEUS PARALYTIC [None]
  - METASTASES TO MENINGES [None]
  - NEOPLASM [None]
  - PULMONARY EMBOLISM [None]
